FAERS Safety Report 5783377-4 (Version None)
Quarter: 2008Q2

REPORT INFORMATION
  Report Type: 
  Country: None (occurrence: None)
  Receive Date: 20080605
  Receipt Date: 20080317
  Transmission Date: 20081010
  Serious: No
  Sender: FDA-Public Use
  Company Number: A0715680A

PATIENT
  Age: 33 Year
  Sex: Female
  Weight: 84.1 kg

DRUGS (1)
  1. ALLI [Suspect]
     Dates: start: 20080311, end: 20080313

REACTIONS (6)
  - ABDOMINAL PAIN [None]
  - MENORRHAGIA [None]
  - MENSTRUAL DISORDER [None]
  - RECTAL DISCHARGE [None]
  - SKIN ODOUR ABNORMAL [None]
  - VAGINAL DISCHARGE [None]
